FAERS Safety Report 8801984 (Version 1)
Quarter: 2012Q4

REPORT INFORMATION
  Report Type: 
  Country: US (occurrence: US)
  Receive Date: 20120921
  Receipt Date: 20120921
  Transmission Date: 20130627
  Serious: No
  Sender: FDA-Public Use
  Company Number: US-BAYER-2012-097623

PATIENT
  Sex: Male
  Weight: 101.59 kg

DRUGS (9)
  1. BETASERON [Suspect]
     Dosage: 0.3 mg, UNK
  2. CELEBREX [Concomitant]
     Dosage: 200 mg, UNK
  3. LIPITOR [Concomitant]
     Dosage: 10 mg, UNK
  4. PRIMIDONE [Concomitant]
     Dosage: 50 mg, UNK
  5. FLEXERIL [Concomitant]
     Dosage: 10 mg, UNK
  6. GABAPENTIN [Concomitant]
     Dosage: 300 mg, UNK
  7. ARCAPTA [Concomitant]
     Dosage: 75 mcg/L, UNK
  8. OPANA [Concomitant]
     Dosage: 15 mg, UNK
  9. BAYER ASPIRIN REGIMEN ADULT LOW STRENGTH [Concomitant]
     Dosage: 81 mg, UNK

REACTIONS (2)
  - Vision blurred [None]
  - Hypoaesthesia [None]
